FAERS Safety Report 13995814 (Version 4)
Quarter: 2019Q2

REPORT INFORMATION
  Report Type: Report from Study
  Country: IN (occurrence: IN)
  Receive Date: 20170921
  Receipt Date: 20190520
  Transmission Date: 20190711
  Serious: Yes (Hospitalization, Other)
  Sender: FDA-Public Use
  Company Number: PHHY2015IN017646

PATIENT
  Age: 62 Year
  Sex: Male

DRUGS (1)
  1. GLIVEC [Suspect]
     Active Substance: IMATINIB MESYLATE
     Indication: CHRONIC MYELOID LEUKAEMIA
     Dosage: 400 MG, UNK
     Route: 065

REACTIONS (12)
  - Fatigue [Unknown]
  - Renal cyst [Unknown]
  - Haematochezia [Unknown]
  - Restlessness [Unknown]
  - Haemoglobin decreased [Not Recovered/Not Resolved]
  - Dyspnoea [Unknown]
  - Nephropathy [Unknown]
  - Hepatic steatosis [Unknown]
  - Asthenia [Unknown]
  - Hypertension [Unknown]
  - Blood creatinine increased [Unknown]
  - Renal failure [Unknown]

NARRATIVE: CASE EVENT DATE: 201512
